FAERS Safety Report 14169559 (Version 1)
Quarter: 2017Q4

REPORT INFORMATION
  Report Type: Spontaneous
  Country: US (occurrence: US)
  Receive Date: 20171107
  Receipt Date: 20171107
  Transmission Date: 20180321
  Serious: Yes (Hospitalization)
  Sender: FDA-Public Use
  Company Number: None

PATIENT
  Age: 10 Year
  Sex: Male

DRUGS (1)
  1. PROPOFOL. [Suspect]
     Active Substance: PROPOFOL

REACTIONS (6)
  - Migraine [None]
  - Pyrexia [None]
  - Drug hypersensitivity [None]
  - Lethargy [None]
  - Urticaria [None]
  - Vomiting [None]

NARRATIVE: CASE EVENT DATE: 20101210
